FAERS Safety Report 8348553-5 (Version None)
Quarter: 2012Q2

REPORT INFORMATION
  Report Type: 
  Country: None (occurrence: None)
  Receive Date: 20120509
  Receipt Date: 20120416
  Transmission Date: 20120825
  Serious: Yes (Hospitalization, Disabling)
  Sender: FDA-Public Use
  Company Number: PHHO2009US06456

PATIENT
  Sex: Male

DRUGS (1)
  1. ZORTRESS [Suspect]
     Indication: LIVER TRANSPLANT
     Dosage: 0.75 MG, UNK
     Route: 048
     Dates: start: 20090326, end: 20090522

REACTIONS (1)
  - INCISIONAL HERNIA [None]
